FAERS Safety Report 8249272-6 (Version None)
Quarter: 2012Q2

REPORT INFORMATION
  Report Type: 
  Country: None (occurrence: None)
  Receive Date: 20120402
  Receipt Date: 20120325
  Transmission Date: 20120825
  Serious: Yes (Other)
  Sender: FDA-Public Use
  Company Number: JP-UCBSA-054117

PATIENT

DRUGS (1)
  1. KEPPRA [Suspect]
     Route: 048

REACTIONS (1)
  - STATUS EPILEPTICUS [None]
